FAERS Safety Report 8521716-1 (Version None)
Quarter: 2012Q3

REPORT INFORMATION
  Report Type: 
  Country: None (occurrence: None)
  Receive Date: 20120719
  Receipt Date: 20120710
  Transmission Date: 20120928
  Serious: Yes (Hospitalization)
  Sender: FDA-Public Use
  Company Number: PHHY2011FR07419

PATIENT
  Age: 41 Year
  Sex: Male

DRUGS (4)
  1. ETHAMBUTOL HYDROCHLORIDE [Concomitant]
     Indication: PULMONARY TUBERCULOSIS
  2. PYRAZINAMIDE [Suspect]
     Indication: PULMONARY TUBERCULOSIS
  3. ISONIAZID [Concomitant]
     Indication: PULMONARY TUBERCULOSIS
  4. RIFABUTIN [Concomitant]
     Indication: PULMONARY TUBERCULOSIS

REACTIONS (3)
  - ACUTE HEPATIC FAILURE [None]
  - HEPATITIS [None]
  - JAUNDICE [None]
